FAERS Safety Report 25554919 (Version 1)
Quarter: 2025Q3

REPORT INFORMATION
  Report Type: Spontaneous
  Country: US (occurrence: US)
  Receive Date: 20250715
  Receipt Date: 20250715
  Transmission Date: 20251020
  Serious: No
  Sender: DR REDDYS
  Company Number: US-DRL-USA-USA/2025/07/009804

PATIENT
  Age: 18 Year
  Sex: Female

DRUGS (3)
  1. FAMOTIDINE [Suspect]
     Active Substance: FAMOTIDINE
     Indication: Oesophagitis
  2. OMEPRAZOLE [Suspect]
     Active Substance: OMEPRAZOLE
     Indication: Oesophagitis
  3. CARAFATE [Concomitant]
     Active Substance: SUCRALFATE
     Indication: Oesophagitis

REACTIONS (1)
  - Drug ineffective [Unknown]
